FAERS Safety Report 7498796-8 (Version None)
Quarter: 2011Q2

REPORT INFORMATION
  Report Type: 
  Country: None (occurrence: None)
  Receive Date: 20110524
  Receipt Date: 20110516
  Transmission Date: 20111010
  Serious: No
  Sender: FDA-Public Use
  Company Number: US-PFIZER INC-2011108046

PATIENT
  Sex: Female

DRUGS (1)
  1. MECLIZINE HCL [Suspect]
     Dosage: UNK

REACTIONS (4)
  - DIARRHOEA [None]
  - HEADACHE [None]
  - DIZZINESS [None]
  - NAUSEA [None]
